FAERS Safety Report 25875350 (Version 1)
Quarter: 2025Q4

REPORT INFORMATION
  Report Type: Spontaneous
  Country: US (occurrence: US)
  Receive Date: 20251003
  Receipt Date: 20251003
  Transmission Date: 20260118
  Serious: No
  Sender: ACCORD
  Company Number: US Coherus Biosciences INC-2024-COH-US000526

PATIENT
  Sex: Female

DRUGS (1)
  1. UDENYCA [Suspect]
     Active Substance: PEGFILGRASTIM-CBQV
     Indication: Product used for unknown indication
     Dosage: 6 MG, Q3WEEKS
     Route: 058
     Dates: start: 20240618

REACTIONS (4)
  - Device malfunction [Unknown]
  - No adverse event [Unknown]
  - No adverse event [Unknown]
  - Device malfunction [Unknown]

NARRATIVE: CASE EVENT DATE: 20240619
